FAERS Safety Report 5265182-0 (Version None)
Quarter: 2007Q1

REPORT INFORMATION
  Report Type: 
  Country: None (occurrence: None)
  Receive Date: 20061121
  Receipt Date: 20060929
  Transmission Date: 20070707
  Serious: No
  Sender: FDA-Public Use
  Company Number: TPA2006A01694

PATIENT
  Age: 49 Year
  Sex: Female
  Weight: 120.2032 kg

DRUGS (11)
  1. ROZEREM [Suspect]
     Dosage: PER ORAL
     Route: 048
  2. RITALIN [Concomitant]
  3. LEXAPRO [Concomitant]
  4. LOPRESSOR [Concomitant]
  5. ASPIRIN [Concomitant]
  6. DEPO-PROVERA SUSPENSION/INJ [Concomitant]
  7. DIPHENHYDRAMINE HCL [Concomitant]
  8. FLEXERIL [Concomitant]
  9. AMBIEN [Concomitant]
  10. ACETAMINOPHEN W/PROPOXYPHENE (PROPOXYPHENE, PARACETAMOL) [Concomitant]
  11. LUNESTA (ALL OTHER THERAPEUTIC PRODUCTS) [Concomitant]

REACTIONS (1)
  - DRUG INEFFECTIVE [None]
